FAERS Safety Report 10196570 (Version 1)
Quarter: 2014Q2

REPORT INFORMATION
  Report Type: Spontaneous
  Country: US (occurrence: US)
  Receive Date: 20140527
  Receipt Date: 20140527
  Transmission Date: 20141212
  Serious: Yes (Other)
  Sender: FDA-Public Use
  Company Number: US-009507513-1405USA011966

PATIENT
  Age: 51 Year
  Sex: Male

DRUGS (10)
  1. SITAGLIPTIN PHOSPHATE [Suspect]
     Dosage: UNK
     Route: 048
  2. IMDUR [Concomitant]
     Dosage: UNK
     Route: 048
  3. PRINIVIL [Concomitant]
     Dosage: UNK
     Route: 048
  4. PRILOSEC [Concomitant]
     Dosage: UNK
     Route: 048
  5. METOPROLOL TARTRATE [Concomitant]
     Dosage: UNK
  6. PIOGLITAZONE HYDROCHLORIDE [Concomitant]
     Dosage: UNK
  7. ASPIRIN [Concomitant]
     Dosage: UNK
  8. GEMFIBROZIL [Concomitant]
     Dosage: UNK
  9. ATORVASTATIN CALCIUM [Concomitant]
     Dosage: UNK
  10. METFORMIN [Concomitant]
     Dosage: UNK

REACTIONS (1)
  - Pancreatitis [Unknown]
